FAERS Safety Report 23775442 (Version 6)
Quarter: 2024Q2

REPORT INFORMATION
  Report Type: Spontaneous
  Country: CA (occurrence: CA)
  Receive Date: 20240423
  Receipt Date: 20240627
  Transmission Date: 20240716
  Serious: Yes (Other)
  Sender: FDA-Public Use
  Company Number: CA-PFIZER INC-202400092096

PATIENT
  Age: 75 Year
  Sex: Male

DRUGS (8)
  1. ABRILADA [Suspect]
     Active Substance: ADALIMUMAB-AFZB
     Indication: Crohn^s disease
     Dosage: 1 DF, AT WEEK 0-160MG, WEEK 2-80 MG, THEN 40 MG EVERY OTHER WEEK STARTING AT WEEK 4 PREFILLED PEN
     Route: 058
     Dates: start: 20231208
  2. ABRILADA [Suspect]
     Active Substance: ADALIMUMAB-AFZB
     Dosage: 40 MG, EVERY OTHER WEEK
     Route: 058
     Dates: start: 2024
  3. ABRILADA [Suspect]
     Active Substance: ADALIMUMAB-AFZB
     Dosage: 1 DF, AT WEEK 0-160MG, WEEK 2-80 MG, THEN 40 MG EVERY OTHER WEEK STARTING AT WEEK 4 PREFILLED PEN
     Route: 058
     Dates: start: 20240624
  4. CRESTOR [Concomitant]
     Active Substance: ROSUVASTATIN CALCIUM
     Dosage: UNK
  5. COVID-19 VACCINE [Concomitant]
     Indication: COVID-19 immunisation
     Dosage: DOSE NUMBER UNKNOWN, SINGLE
     Dates: start: 2024, end: 2024
  6. FENOFIBRATE [Concomitant]
     Active Substance: FENOFIBRATE
     Dosage: UNK
  7. METFORMIN [Concomitant]
     Active Substance: METFORMIN HYDROCHLORIDE
     Dosage: UNK
  8. NADOLOL [Concomitant]
     Active Substance: NADOLOL
     Dosage: UNK

REACTIONS (4)
  - Toe operation [Not Recovered/Not Resolved]
  - Arthralgia [Unknown]
  - Circumstance or information capable of leading to medication error [Unknown]
  - Epistaxis [Not Recovered/Not Resolved]

NARRATIVE: CASE EVENT DATE: 20240101
